FAERS Safety Report 5563039-9 (Version None)
Quarter: 2007Q4

REPORT INFORMATION
  Report Type: 
  Country: None (occurrence: None)
  Receive Date: 20071217
  Receipt Date: 20071204
  Transmission Date: 20080405
  Serious: Yes (Hospitalization)
  Sender: FDA-Public Use
  Company Number: IR-ROCHE-535113

PATIENT
  Age: 49 Year
  Sex: Female

DRUGS (2)
  1. PEGASYS [Suspect]
     Dosage: DOSE: 180 MCG WEEKLY. FORM: PFS
     Route: 065
     Dates: start: 20070701
  2. COPEGUS [Suspect]
     Route: 065
     Dates: start: 20070701

REACTIONS (3)
  - BRONCHITIS [None]
  - CARDIAC DISORDER [None]
  - THYROID DISORDER [None]
